FAERS Safety Report 5003527-7 (Version None)
Quarter: 2006Q2

REPORT INFORMATION
  Report Type: 
  Country: None (occurrence: None)
  Receive Date: 20060511
  Receipt Date: 20060501
  Transmission Date: 20061013
  Serious: Yes (Hospitalization)
  Sender: FDA-Public Use
  Company Number: 2006-01715

PATIENT
  Age: 73 Year
  Sex: Female
  Weight: 33.5 kg

DRUGS (3)
  1. METFORMIN HYDROCHLORIDE [Suspect]
     Indication: DIABETES MELLITUS
     Dosage: 250 MG, BID, ORAL
     Route: 048
  2. STARLIX [Concomitant]
  3. PIOGLITAZONE HCL [Concomitant]

REACTIONS (1)
  - HEPATOTOXICITY [None]
